FAERS Safety Report 23491665 (Version 3)
Quarter: 2024Q1

REPORT INFORMATION
  Report Type: Spontaneous
  Country: US (occurrence: US)
  Receive Date: 20240207
  Receipt Date: 20240226
  Transmission Date: 20240410
  Serious: Yes (Hospitalization, Other)
  Sender: FDA-Public Use
  Company Number: US-SANDOZ-SDZ2024US011311

PATIENT
  Age: 83 Year
  Sex: Female

DRUGS (3)
  1. ENTRESTO [Suspect]
     Active Substance: SACUBITRIL\VALSARTAN
     Indication: Cardiac failure
     Dosage: 1 DF, BID, 24.26 MG, ONE TABLET ONCE A DAY FOR 5 DAYS, THEN TWICE A DAY
     Route: 048
     Dates: start: 2021
  2. METOPROLOL [Suspect]
     Active Substance: METOPROLOL
     Indication: Atrial fibrillation
     Dosage: UNK
     Route: 065
     Dates: start: 202401
  3. PREDNISONE [Suspect]
     Active Substance: PREDNISONE
     Indication: COVID-19 treatment
     Dosage: UNK
     Route: 065
     Dates: start: 202311

REACTIONS (13)
  - Atrial fibrillation [Recovered/Resolved]
  - Angle closure glaucoma [Not Recovered/Not Resolved]
  - Loss of consciousness [Recovered/Resolved]
  - Condition aggravated [Not Recovered/Not Resolved]
  - COVID-19 [Not Recovered/Not Resolved]
  - Hypophagia [Unknown]
  - Sinusitis [Unknown]
  - Balance disorder [Unknown]
  - Asthenia [Unknown]
  - Blood pressure fluctuation [Unknown]
  - Fatigue [Unknown]
  - Diarrhoea [Recovered/Resolved]
  - Dizziness [Unknown]

NARRATIVE: CASE EVENT DATE: 20240101
